FAERS Safety Report 8020655-2 (Version None)
Quarter: 2012Q1

REPORT INFORMATION
  Report Type: 
  Country: None (occurrence: None)
  Receive Date: 20120103
  Receipt Date: 20111223
  Transmission Date: 20120608
  Serious: Yes (Hospitalization)
  Sender: FDA-Public Use
  Company Number: US-ASTRAZENECA-2011SE76449

PATIENT
  Age: 71 Year
  Sex: Female

DRUGS (6)
  1. METOPROLOL TARTRATE [Suspect]
     Route: 065
  2. AVALIDE [Concomitant]
     Dosage: 150/12.5 DAILY
  3. VITAMIN D [Concomitant]
  4. CRESTOR [Suspect]
     Route: 048
  5. TOPROL-XL [Suspect]
     Route: 048
  6. ASPIRIN [Concomitant]

REACTIONS (6)
  - DRUG HYPERSENSITIVITY [None]
  - DRUG DOSE OMISSION [None]
  - MALAISE [None]
  - DYSPNOEA [None]
  - HYPERSENSITIVITY [None]
  - BLOOD PRESSURE INCREASED [None]
